FAERS Safety Report 7068447-5 (Version None)
Quarter: 2010Q4

REPORT INFORMATION
  Report Type: 
  Country: None (occurrence: None)
  Receive Date: 20101028
  Receipt Date: 20101020
  Transmission Date: 20110411
  Serious: Yes (Hospitalization)
  Sender: FDA-Public Use
  Company Number: US-JNJFOC-20100907553

PATIENT
  Sex: Female
  Weight: 61.24 kg

DRUGS (5)
  1. FENTANYL CITRATE [Suspect]
     Indication: PAIN
     Route: 062
  2. DURAGESIC-100 [Suspect]
     Indication: PAIN
     Route: 062
  3. FENTANYL CITRATE [Suspect]
     Route: 062
  4. OXYCODONE HCL AND ACETAMINOPHEN [Concomitant]
     Indication: BREAKTHROUGH PAIN
     Dosage: 10-325 MG
     Route: 048
  5. FLEXERIL [Concomitant]
     Indication: PRODUCT USED FOR UNKNOWN INDICATION
     Route: 048

REACTIONS (3)
  - BACK DISORDER [None]
  - PRODUCT ADHESION ISSUE [None]
  - WRONG TECHNIQUE IN DRUG USAGE PROCESS [None]
